FAERS Safety Report 9511133 (Version 1)
Quarter: 2013Q3

REPORT INFORMATION
  Report Type: Spontaneous
  Country: US (occurrence: None)
  Receive Date: 20130909
  Receipt Date: 20130909
  Transmission Date: 20140515
  Serious: No
  Sender: FDA-Public Use
  Company Number: None

PATIENT
  Age: 70 Year
  Sex: Female

DRUGS (4)
  1. GABAPENTIN [Suspect]
     Indication: PLASMA CELL MYELOMA
  2. ZOMETA [Concomitant]
  3. CARFILZOMIB [Concomitant]
  4. CYTOXIN [Concomitant]

REACTIONS (4)
  - Balance disorder [None]
  - Gait disturbance [None]
  - Lip pain [None]
  - Lip swelling [None]
